FAERS Safety Report 7888735-X (Version None)
Quarter: 2011Q4

REPORT INFORMATION
  Report Type: 
  Country: None (occurrence: None)
  Receive Date: 20111103
  Receipt Date: 20111101
  Transmission Date: 20120403
  Serious: Yes (Other)
  Sender: FDA-Public Use
  Company Number: US-PFIZER INC-2011223147

PATIENT
  Sex: Male

DRUGS (2)
  1. IBUPROFEN [Concomitant]
     Indication: PAIN
     Dosage: UNK, AS NEEDED
  2. LYRICA [Suspect]
     Indication: PAIN
     Dosage: 150MG DAILY
     Route: 048
     Dates: start: 20110101, end: 20110101

REACTIONS (3)
  - OXYGEN SATURATION DECREASED [None]
  - ANAPHYLACTIC REACTION [None]
  - HYPOTENSION [None]
